FAERS Safety Report 8446575 (Version 3)
Quarter: 2012Q4

REPORT INFORMATION
  Report Type: 
  Country: TR (occurrence: TR)
  Receive Date: 20120308
  Receipt Date: 20120913
  Transmission Date: 20130627
  Serious: Yes (Other)
  Sender: FDA-Public Use
  Company Number: TR-AMGEN-TURSP2012013675

PATIENT
  Age: 67 Year
  Sex: Male

DRUGS (2)
  1. ENBREL [Suspect]
     Indication: ANKYLOSING SPONDYLITIS
     Dosage: 25 mg, 2x/week
     Route: 058
     Dates: start: 20111202, end: 20120201
  2. ENBREL [Suspect]
     Dosage: 25 mg, 2 times/wk
     Route: 058

REACTIONS (3)
  - Jaundice [Recovered/Resolved]
  - Hepatic enzyme abnormal [Recovered/Resolved]
  - Pruritus [Not Recovered/Not Resolved]
